FAERS Safety Report 4488197-9 (Version None)
Quarter: 2004Q4

REPORT INFORMATION
  Report Type: 
  Country: None (occurrence: None)
  Receive Date: 20041025
  Receipt Date: 20041011
  Transmission Date: 20050328
  Serious: Yes (Other)
  Sender: FDA-Public Use
  Company Number: 2004076841

PATIENT
  Sex: Male

DRUGS (5)
  1. NEURONTIN [Suspect]
     Indication: BIPOLAR DISORDER
     Dosage: 1800 MG (600 MG, 3 IN 1 D)
  2. NEURONTIN [Suspect]
     Indication: DEPRESSION
     Dosage: 1800 MG (600 MG, 3 IN 1 D)
  3. NEURONTIN [Suspect]
     Indication: MENTAL DISORDER
     Dosage: 1800 MG (600 MG, 3 IN 1 D)
  4. NEURONTIN [Suspect]
     Indication: SCHIZOPHRENIA
     Dosage: 1800 MG (600 MG, 3 IN 1 D)
  5. NEURONTIN [Suspect]
     Indication: SUICIDAL IDEATION
     Dosage: 1800 MG (600 MG, 3 IN 1 D)

REACTIONS (4)
  - CONDITION AGGRAVATED [None]
  - MENTAL DISORDER [None]
  - SUICIDAL IDEATION [None]
  - TREATMENT NONCOMPLIANCE [None]
